FAERS Safety Report 21763202 (Version 1)
Quarter: 2022Q4

REPORT INFORMATION
  Report Type: Spontaneous
  Country: US (occurrence: None)
  Receive Date: 20221221
  Receipt Date: 20221221
  Transmission Date: 20230112
  Serious: Yes (Hospitalization)
  Sender: FDA-Public Use
  Company Number: None

PATIENT
  Sex: Female
  Weight: 53.3 kg

DRUGS (7)
  1. CYCLOPHOSPHAMIDE [Suspect]
     Active Substance: CYCLOPHOSPHAMIDE
  2. CYTARABINE [Concomitant]
  3. DEXAMETHASONE [Concomitant]
  4. METHOTREXATE [Concomitant]
  5. ONCASPAR [Concomitant]
     Active Substance: PEGASPARGASE
  6. GLEEVEC [Concomitant]
     Active Substance: IMATINIB MESYLATE
  7. VINCRISTINE SULFATE [Concomitant]

REACTIONS (3)
  - Mucosal inflammation [None]
  - Stevens-Johnson syndrome [None]
  - Respiratory distress [None]

NARRATIVE: CASE EVENT DATE: 20221130
